FAERS Safety Report 10079571 (Version 1)
Quarter: 2014Q2

REPORT INFORMATION
  Report Type: Spontaneous
  Country: DE (occurrence: DE)
  Receive Date: 20140415
  Receipt Date: 20140415
  Transmission Date: 20141212
  Serious: Yes (Other)
  Sender: FDA-Public Use
  Company Number: DE-PFIZER INC-2014099376

PATIENT
  Sex: Male

DRUGS (6)
  1. ZYVOXID [Suspect]
     Indication: INFECTION
     Dosage: 600 MG, 2X/DAY
  2. CYCLOSPORIN [Concomitant]
  3. PREDNISOLON [Concomitant]
  4. METOPROLOL [Concomitant]
  5. TAMSULOSIN [Concomitant]
  6. MARCUMAR [Concomitant]

REACTIONS (1)
  - Cholestasis [Not Recovered/Not Resolved]
